FAERS Safety Report 21353665 (Version 2)
Quarter: 2022Q3

REPORT INFORMATION
  Report Type: Spontaneous
  Country: IN (occurrence: IN)
  Receive Date: 20220920
  Receipt Date: 20220926
  Transmission Date: 20221026
  Serious: Yes (Other)
  Sender: FDA-Public Use
  Company Number: IN-CIPLA LTD.-2022IN05440

PATIENT
  Sex: Male

DRUGS (10)
  1. BUDESONIDE [Suspect]
     Active Substance: BUDESONIDE
     Indication: Asthma
     Dosage: UNK, 1.5 TO 2 YEARS AGO
     Route: 065
  2. BUDESONIDE [Suspect]
     Active Substance: BUDESONIDE
     Dosage: UNK
     Route: 065
     Dates: start: 2022, end: 202208
  3. ALBUTEROL [Suspect]
     Active Substance: ALBUTEROL
     Indication: Asthma
     Dosage: UNK
     Route: 065
     Dates: start: 2021
  4. ALBUTEROL [Suspect]
     Active Substance: ALBUTEROL
     Dosage: UNK
     Route: 065
     Dates: start: 2022, end: 202208
  5. MOMETASONE FUROATE [Suspect]
     Active Substance: MOMETASONE FUROATE
     Indication: Asthma
     Dosage: UNK
     Route: 045
     Dates: start: 2021
  6. MOMETASONE FUROATE [Suspect]
     Active Substance: MOMETASONE FUROATE
     Dosage: UNK
     Route: 045
     Dates: start: 2022, end: 202208
  7. DEVICE [Suspect]
     Active Substance: DEVICE
     Indication: Asthma
     Dosage: UNK
     Route: 065
     Dates: start: 202208, end: 202208
  8. RABEPRAZOLE [Suspect]
     Active Substance: RABEPRAZOLE
     Indication: Product used for unknown indication
     Dosage: 0.5 DOSAGE FORM, QD (HALF TAB? DAILY ONCE)
     Route: 065
     Dates: start: 20220811
  9. ZEAL [Concomitant]
     Indication: Dry throat
     Dosage: 0.5 DOSAGE FORM, PRN (1/2 TABLET EVERY 1/2 HOUR OR 1 HOUR AS NEEDED)
     Route: 065
     Dates: start: 20220811
  10. MONTICOPE [Concomitant]
     Indication: Product used for unknown indication
     Dosage: 1 DOSAGE FORM, QD (1 TAB / DAILY ONCE)
     Route: 065
     Dates: start: 20220811

REACTIONS (5)
  - Asthma [Recovering/Resolving]
  - Drug ineffective [Recovering/Resolving]
  - Allergic bronchitis [Recovering/Resolving]
  - Suspected counterfeit product [Unknown]
  - Wrong technique in product usage process [Unknown]

NARRATIVE: CASE EVENT DATE: 20220101
